FAERS Safety Report 4848925-7 (Version None)
Quarter: 2005Q4

REPORT INFORMATION
  Report Type: 
  Country: None (occurrence: None)
  Receive Date: 20051121
  Receipt Date: 20050426
  Transmission Date: 20060501
  Serious: No
  Sender: FDA-Public Use
  Company Number: 243759

PATIENT
  Age: 16 Year
  Sex: Male
  Weight: 98.8842 kg

DRUGS (2)
  1. NORDITROPIN [Suspect]
     Indication: GROWTH HORMONE DEFICIENCY
     Dosage: 2.6 MG, QD, SUBCUTANEOUS
     Route: 058
     Dates: start: 20030101, end: 20050413
  2. NORDIPEN  15 (-) [Concomitant]

REACTIONS (1)
  - HYPERSENSITIVITY [None]
